FAERS Safety Report 26205397 (Version 1)
Quarter: 2025Q4

REPORT INFORMATION
  Report Type: Report from Study
  Country: US (occurrence: US)
  Receive Date: 20251228
  Receipt Date: 20251228
  Transmission Date: 20260117
  Serious: Yes (Other)
  Sender: ABBVIE
  Company Number: US-ABBVIE-6595215

PATIENT
  Age: 61 Year
  Sex: Female

DRUGS (1)
  1. SYNTHROID [Suspect]
     Active Substance: LEVOTHYROXINE SODIUM
     Indication: Product used for unknown indication
     Dosage: 175MCG/ TAKE 1 TAB 6 DAYS PER WEEK AND HALF TAB 1 DAY
     Route: 048
     Dates: start: 20190321, end: 20251201

REACTIONS (5)
  - Thyroid cancer [Unknown]
  - Blood glucose increased [Unknown]
  - Dizziness [Unknown]
  - Fatigue [Unknown]
  - Blood thyroid stimulating hormone increased [Unknown]

NARRATIVE: CASE EVENT DATE: 20251101
